FAERS Safety Report 9331930 (Version 1)
Quarter: 2013Q2

REPORT INFORMATION
  Report Type: Spontaneous
  Country: US (occurrence: US)
  Receive Date: 20130605
  Receipt Date: 20130605
  Transmission Date: 20140414
  Serious: Yes (Other)
  Sender: FDA-Public Use
  Company Number: US-BAYER-2013-067659

PATIENT
  Age: 56 Year
  Sex: Male
  Weight: 102.4 kg

DRUGS (2)
  1. ONE A DAY MEN^S 50+ HEALTHY ADVANTAGE [Suspect]
     Dosage: 1 DF, QD
     Route: 048
     Dates: start: 20070524, end: 20130516
  2. BAYER ASPIRIN REGIMEN ADULT LOW STRENGTH [Suspect]
     Dosage: 1 DF, QD
     Route: 048

REACTIONS (4)
  - Choking [Recovered/Resolved]
  - Choking [Recovered/Resolved]
  - Foreign body [Recovered/Resolved]
  - Throat irritation [Recovered/Resolved]
